FAERS Safety Report 9761285 (Version 3)
Quarter: 2014Q1

REPORT INFORMATION
  Report Type: Spontaneous
  Country: JP (occurrence: JP)
  Receive Date: 20131216
  Receipt Date: 20140208
  Transmission Date: 20141002
  Serious: Yes (Other)
  Sender: FDA-Public Use
  Company Number: JP-UCBSA-105941

PATIENT
  Age: 89 Year
  Sex: Female

DRUGS (2)
  1. XYZAL [Suspect]
     Indication: PRURITUS
     Route: 048
  2. XYZAL [Suspect]
     Indication: PRURITUS
     Route: 048

REACTIONS (3)
  - Pneumonia aspiration [Recovering/Resolving]
  - Somnolence [Recovered/Resolved]
  - Overdose [Recovered/Resolved]
